FAERS Safety Report 4433975-5 (Version None)
Quarter: 2004Q3

REPORT INFORMATION
  Report Type: 
  Country: None (occurrence: None)
  Receive Date: 20040825
  Receipt Date: 20040805
  Transmission Date: 20050211
  Serious: Yes (Hospitalization)
  Sender: FDA-Public Use
  Company Number: US_0408104695

PATIENT
  Age: 51 Year
  Sex: Female
  Weight: 65 kg

DRUGS (6)
  1. DULOXETINE HYDROCHLORIDE [Suspect]
     Indication: STRESS INCONTINENCE
     Dosage: 40 MG/2 DAY
     Dates: start: 20040408, end: 20040804
  2. DEXEDRINE (DEXAMFETAMINE SULFATE) [Concomitant]
  3. NORVASC [Concomitant]
  4. LOTREL [Concomitant]
  5. DIOVAN [Concomitant]
  6. HYDROCHLOROTHIAZIDE [Concomitant]

REACTIONS (22)
  - ABNORMAL BEHAVIOUR [None]
  - ACTIVATED PARTIAL THROMBOPLASTIN TIME PROLONGED [None]
  - BALANCE DISORDER [None]
  - BLOOD POTASSIUM DECREASED [None]
  - CLUMSINESS [None]
  - CONFUSIONAL STATE [None]
  - DISSOCIATION [None]
  - DISTURBANCE IN ATTENTION [None]
  - DRUG HYPERSENSITIVITY [None]
  - FEELING ABNORMAL [None]
  - GAIT DISTURBANCE [None]
  - HEADACHE [None]
  - HYPERTENSION [None]
  - INFLUENZA LIKE ILLNESS [None]
  - MALAISE [None]
  - MENTAL STATUS CHANGES [None]
  - NITRITE URINE PRESENT [None]
  - PAIN IN EXTREMITY [None]
  - PARAESTHESIA [None]
  - SPEECH DISORDER [None]
  - VERTIGO [None]
  - WHITE BLOOD CELLS URINE POSITIVE [None]
